FAERS Safety Report 5723915-0 (Version None)
Quarter: 2008Q2

REPORT INFORMATION
  Report Type: 
  Country: None (occurrence: None)
  Receive Date: 20080428
  Receipt Date: 20080418
  Transmission Date: 20081010
  Serious: Yes (Death)
  Sender: FDA-Public Use
  Company Number: 163-20785-08041368

PATIENT
  Age: 57 Year
  Sex: Female

DRUGS (1)
  1. THALOMID [Suspect]
     Indication: BRAIN NEOPLASM MALIGNANT
     Dosage: 200 MG, 4 IN 1 D, ORAL
     Route: 048
     Dates: start: 20080325, end: 20080301

REACTIONS (1)
  - NEOPLASM MALIGNANT [None]
